FAERS Safety Report 22352268 (Version 1)
Quarter: 2023Q2

REPORT INFORMATION
  Report Type: Spontaneous
  Country: CA (occurrence: CA)
  Receive Date: 20230522
  Receipt Date: 20230522
  Transmission Date: 20230722
  Serious: Yes (Other)
  Sender: FDA-Public Use
  Company Number: CA-PFIZER INC-2020312925

PATIENT
  Age: 55 Year
  Sex: Female
  Weight: 70 kg

DRUGS (3)
  1. XELJANZ XR [Suspect]
     Active Substance: TOFACITINIB CITRATE
     Indication: Rheumatoid arthritis
     Dosage: 11 MG, 1X/DAY
     Route: 048
     Dates: start: 20200630
  2. PLAQUENIL [Concomitant]
     Active Substance: HYDROXYCHLOROQUINE SULFATE
     Dosage: 200 DF, 1X/DAY
     Route: 065
  3. TYLENOL WITH CODEINE [Concomitant]
     Active Substance: ACETAMINOPHEN\CODEINE PHOSPHATE
     Dosage: UNK
     Route: 065

REACTIONS (11)
  - Neoplasm malignant [Unknown]
  - Musculoskeletal stiffness [Not Recovered/Not Resolved]
  - Rash [Unknown]
  - Joint injury [Unknown]
  - Fibromyalgia [Unknown]
  - Pain [Unknown]
  - Muscle spasms [Unknown]
  - Tenderness [Unknown]
  - Hypokinesia [Unknown]
  - Infection [Recovered/Resolved]
  - Post procedural infection [Recovered/Resolved]

NARRATIVE: CASE EVENT DATE: 20230101
